FAERS Safety Report 8045374-8 (Version None)
Quarter: 2012Q1

REPORT INFORMATION
  Report Type: 
  Country: None (occurrence: None)
  Receive Date: 20120113
  Receipt Date: 20120105
  Transmission Date: 20120608
  Serious: Yes (Life-Threatening)
  Sender: FDA-Public Use
  Company Number: GB-AMGEN-GBRSP2012001250

PATIENT
  Age: 58 Year
  Sex: Female
  Weight: 88 kg

DRUGS (7)
  1. ACETAMINOPHEN [Concomitant]
     Dosage: UNK
  2. QUININE SULFATE [Concomitant]
     Dosage: UNK
  3. LOSARTAN POTASSIUM [Concomitant]
     Dosage: UNK
  4. ENBREL [Suspect]
     Indication: RHEUMATOID ARTHRITIS
     Dosage: 50 MG, UNK
     Route: 058
     Dates: end: 20111017
  5. FUROSEMIDE [Concomitant]
     Dosage: UNK
  6. TEMAZEPAM [Concomitant]
     Dosage: UNK
  7. LANSOPRAZOLE [Concomitant]
     Dosage: UNK

REACTIONS (1)
  - BILE DUCT CANCER NON-RESECTABLE [None]
